FAERS Safety Report 8675669 (Version 2)
Quarter: 2012Q4

REPORT INFORMATION
  Report Type: 
  Country: MX (occurrence: MX)
  Receive Date: 20120720
  Receipt Date: 20120831
  Transmission Date: 20130627
  Serious: Yes (Death, Hospitalization)
  Sender: FDA-Public Use
  Company Number: PHHY2012MX061777

PATIENT
  Age: 70 Year
  Sex: Female
  Weight: 57 kg

DRUGS (6)
  1. SIMVASTATIN [Suspect]
     Indication: CORONARY ARTERY DISEASE
     Dosage: 80 mg, QD
     Route: 048
  2. ASPIRIN [Concomitant]
     Dosage: 100 mg/day
  3. CLOPIDOGREL [Concomitant]
     Dosage: 75 mg/day
  4. ENALAPRIL [Concomitant]
     Dosage: 5 mg/day
  5. METOPROLOL [Concomitant]
     Dosage: 25 mg, Q12H
  6. ISOSORBIDE MONONITRATE [Concomitant]
     Dosage: 50 mg/day

REACTIONS (28)
  - Multi-organ failure [Fatal]
  - Septic shock [Fatal]
  - Systemic inflammatory response syndrome [Fatal]
  - Escherichia test positive [Fatal]
  - Disseminated intravascular coagulation [Unknown]
  - Acute pulmonary oedema [Unknown]
  - Myocardial infarction [Unknown]
  - Intestinal obstruction [Unknown]
  - Abdominal pain [Unknown]
  - Abdominal distension [Unknown]
  - Rhabdomyolysis [Unknown]
  - Asthenia [Unknown]
  - Disorientation [Unknown]
  - Myalgia [Unknown]
  - Myopathy [Unknown]
  - General physical health deterioration [Unknown]
  - Muscle injury [Unknown]
  - Anaemia [Unknown]
  - Renal failure [Unknown]
  - Oliguria [Unknown]
  - Azotaemia [Unknown]
  - Polyuria [Unknown]
  - Urine analysis abnormal [Unknown]
  - Anuria [Unknown]
  - Hepatic failure [Unknown]
  - Liver function test abnormal [Unknown]
  - Haematuria [Unknown]
  - Proteinuria [Unknown]
